FAERS Safety Report 25755850 (Version 1)
Quarter: 2025Q3

REPORT INFORMATION
  Report Type: Spontaneous
  Country: JP (occurrence: JP)
  Receive Date: 20250903
  Receipt Date: 20250903
  Transmission Date: 20251020
  Serious: Yes (Other)
  Sender: ELI LILLY AND COMPANY
  Company Number: JP-ELI_LILLY_AND_COMPANY-JP202508028720

PATIENT
  Age: 64 Year
  Sex: Male
  Weight: 57 kg

DRUGS (3)
  1. GEMCITABINE HYDROCHLORIDE [Suspect]
     Active Substance: GEMCITABINE HYDROCHLORIDE
     Indication: Pancreatic carcinoma metastatic
     Route: 041
  2. PACLITAXEL [Suspect]
     Active Substance: PACLITAXEL
     Indication: Pancreatic carcinoma metastatic
     Route: 065
  3. MIROGABALIN BESYLATE [Suspect]
     Active Substance: MIROGABALIN BESYLATE
     Indication: Neuropathy peripheral
     Route: 065

REACTIONS (7)
  - Cachexia [Not Recovered/Not Resolved]
  - Malignant neoplasm progression [Unknown]
  - Ascites [Unknown]
  - Neuropathy peripheral [Unknown]
  - Constipation [Recovered/Resolved]
  - Oedema peripheral [Not Recovered/Not Resolved]
  - Drug ineffective [Unknown]
